FAERS Safety Report 11813390 (Version 1)
Quarter: 2015Q4

REPORT INFORMATION
  Report Type: Spontaneous
  Country: US (occurrence: None)
  Receive Date: 20151207
  Receipt Date: 20151207
  Transmission Date: 20160305
  Serious: Yes (Hospitalization)
  Sender: FDA-Public Use
  Company Number: None

PATIENT
  Age: 52 Year
  Sex: Male

DRUGS (1)
  1. HUMIRA [Suspect]
     Active Substance: ADALIMUMAB
     Indication: PSORIASIS
     Dosage: INJECTABLE
     Route: 058
     Dates: start: 201502, end: 201507

REACTIONS (3)
  - Psoriasis [None]
  - Skin infection [None]
  - Cellulitis [None]

NARRATIVE: CASE EVENT DATE: 20151001
